FAERS Safety Report 9646244 (Version 2)
Quarter: 2013Q4

REPORT INFORMATION
  Report Type: Spontaneous
  Country: US (occurrence: US)
  Receive Date: 20131025
  Receipt Date: 20131025
  Transmission Date: 20140711
  Serious: No
  Sender: FDA-Public Use
  Company Number: US-US-EMD SERONO, INC.-231585K08USA

PATIENT
  Age: 56 Year
  Sex: Male
  Weight: 84 kg

DRUGS (7)
  1. REBIF [Suspect]
     Indication: MULTIPLE SCLEROSIS
     Route: 058
     Dates: start: 20060515
  2. REBIF [Suspect]
     Route: 058
     Dates: start: 20090615, end: 20130920
  3. CARVEDILOL [Concomitant]
     Indication: HYPERTENSION
  4. PRAVASTATIN [Concomitant]
     Indication: BLOOD CHOLESTEROL INCREASED
  5. HYDROCHLOROTHIAZIDE [Concomitant]
     Indication: HYPERTENSION
  6. CITALOPRAM [Concomitant]
     Indication: DEPRESSION
  7. METFORMIN [Concomitant]
     Indication: TYPE 2 DIABETES MELLITUS

REACTIONS (7)
  - White blood cell count increased [Unknown]
  - Electrocardiogram abnormal [Unknown]
  - Gait disturbance [Unknown]
  - Muscular weakness [Recovering/Resolving]
  - Platelet count decreased [Recovering/Resolving]
  - Muscle spasms [Unknown]
  - Injection site reaction [Unknown]
